FAERS Safety Report 5701180-8 (Version None)
Quarter: 2008Q2

REPORT INFORMATION
  Report Type: 
  Country: None (occurrence: None)
  Receive Date: 20080410
  Receipt Date: 20080404
  Transmission Date: 20081010
  Serious: Yes (Death, Hospitalization)
  Sender: FDA-Public Use
  Company Number: NL-BOEHRINGER INGELHEIM GMBH, GERMANY-2008-DE-02006GD

PATIENT
  Age: 75 Year
  Sex: Female

DRUGS (6)
  1. MORPHINE [Suspect]
     Indication: PAIN
     Route: 058
  2. MORPHINE [Suspect]
     Route: 058
  3. MORPHINE [Suspect]
     Route: 061
  4. PARACETAMOL [Suspect]
     Indication: PAIN
  5. NAPROXEN [Suspect]
     Indication: PAIN
  6. FENTANYL [Suspect]
     Indication: PAIN
     Dosage: 25 MCG/H
     Route: 062

REACTIONS (5)
  - CARDIAC ARREST [None]
  - CONSTIPATION [None]
  - DRUG EFFECT DECREASED [None]
  - DUODENAL PERFORATION [None]
  - ILEUS [None]
